FAERS Safety Report 20565785 (Version 1)
Quarter: 2022Q1

REPORT INFORMATION
  Report Type: Spontaneous
  Country: US (occurrence: None)
  Receive Date: 20220307
  Receipt Date: 20220307
  Transmission Date: 20220423
  Serious: Yes (Hospitalization)
  Sender: FDA-Public Use
  Company Number: None

PATIENT
  Sex: Female

DRUGS (9)
  1. RILUZOLE [Suspect]
     Active Substance: RILUZOLE
     Indication: Amyotrophic lateral sclerosis
     Dosage: TAKE 1 TABLET (50MG) BY MOUTH EVERY 12 HOURS
     Route: 048
     Dates: start: 20210821
  2. ASPIRIN LOW TAB [Concomitant]
  3. FLONASE ALGY SPR [Concomitant]
  4. FOLIC ACID TAB [Concomitant]
  5. IRON TAB [Concomitant]
  6. KEPPRA TAB [Concomitant]
  7. LISINOPRIL [Concomitant]
     Active Substance: LISINOPRIL
  8. TRAMADOL HCL [Concomitant]
     Active Substance: TRAMADOL HYDROCHLORIDE
  9. TYLENOL TAB [Concomitant]

REACTIONS (3)
  - Abdominal mass [None]
  - Pulmonary mass [None]
  - Intestinal mass [None]
